FAERS Safety Report 12214969 (Version 3)
Quarter: 2016Q2

REPORT INFORMATION
  Report Type: Spontaneous
  Country: US (occurrence: US)
  Receive Date: 20160328
  Receipt Date: 20160509
  Transmission Date: 20160815
  Serious: Yes (Other)
  Sender: FDA-Public Use
  Company Number: US-BAYER-2016-057389

PATIENT
  Age: 25 Year
  Sex: Female

DRUGS (1)
  1. MIRENA [Suspect]
     Active Substance: LEVONORGESTREL
     Indication: CONTRACEPTION
     Dosage: 20 MCG/24HR, CONT
     Route: 015
     Dates: start: 2009

REACTIONS (27)
  - Amenorrhoea [Recovered/Resolved]
  - Abdominal distension [Recovered/Resolved]
  - Mobility decreased [Not Recovered/Not Resolved]
  - Hypoaesthesia [Not Recovered/Not Resolved]
  - Insomnia [Not Recovered/Not Resolved]
  - Weight increased [Not Recovered/Not Resolved]
  - Dry skin [Not Recovered/Not Resolved]
  - Feeling abnormal [Recovered/Resolved]
  - Feeling abnormal [Not Recovered/Not Resolved]
  - Loss of libido [Not Recovered/Not Resolved]
  - Pallor [Not Recovered/Not Resolved]
  - Back pain [Not Recovered/Not Resolved]
  - Hyperphagia [Recovered/Resolved]
  - Neuralgia [Not Recovered/Not Resolved]
  - Abdominal distension [Not Recovered/Not Resolved]
  - Vaginal discharge [Not Recovered/Not Resolved]
  - Iron deficiency anaemia [Not Recovered/Not Resolved]
  - Dysmenorrhoea [Not Recovered/Not Resolved]
  - Migraine [Not Recovered/Not Resolved]
  - Neck pain [Not Recovered/Not Resolved]
  - Pelvic pain [Recovered/Resolved]
  - Depression [Not Recovered/Not Resolved]
  - Dizziness [Not Recovered/Not Resolved]
  - Menorrhagia [Not Recovered/Not Resolved]
  - Alopecia [Not Recovered/Not Resolved]
  - Arthralgia [Not Recovered/Not Resolved]
  - Visual impairment [Not Recovered/Not Resolved]

NARRATIVE: CASE EVENT DATE: 2009
